FAERS Safety Report 6771260-7 (Version None)
Quarter: 2010Q2

REPORT INFORMATION
  Report Type: 
  Country: None (occurrence: None)
  Receive Date: 20100616
  Receipt Date: 20100607
  Transmission Date: 20101027
  Serious: Yes (Other)
  Sender: FDA-Public Use
  Company Number: US-BAXTER-2010BH008965

PATIENT
  Age: 47 Year
  Sex: Female

DRUGS (8)
  1. GAMMAGARD LIQUID [Suspect]
     Indication: HYPOGAMMAGLOBULINAEMIA
     Route: 042
     Dates: start: 20080801, end: 20100301
  2. GAMMAGARD LIQUID [Suspect]
     Route: 042
     Dates: start: 20100402
  3. COMBIPATCH [Concomitant]
  4. CLONAZEPAM [Concomitant]
  5. NORMAL SALINE [Concomitant]
     Route: 042
  6. BENADRYL [Concomitant]
     Indication: PREMEDICATION
     Route: 042
  7. ACETAMINOPHEN [Concomitant]
     Indication: PREMEDICATION
     Route: 048
  8. CORTICOSTEROIDS [Concomitant]
     Indication: PREMEDICATION
     Route: 042

REACTIONS (6)
  - DEHYDRATION [None]
  - HEADACHE [None]
  - INFUSION SITE ANAESTHESIA [None]
  - INFUSION SITE PAIN [None]
  - THROMBOSIS [None]
  - URINE OUTPUT DECREASED [None]
